FAERS Safety Report 25505909 (Version 1)
Quarter: 2025Q3

REPORT INFORMATION
  Report Type: Spontaneous
  Country: SG (occurrence: SG)
  Receive Date: 20250702
  Receipt Date: 20250702
  Transmission Date: 20251021
  Serious: Yes (Death)
  Sender: AMGEN
  Company Number: SG-AMGEN-SGPSP2025126286

PATIENT
  Sex: Male

DRUGS (4)
  1. CINACALCET HYDROCHLORIDE [Suspect]
     Active Substance: CINACALCET HYDROCHLORIDE
     Indication: Hyperparathyroidism tertiary
     Dosage: 50 MILLIGRAM, QD
     Route: 065
  2. CINACALCET HYDROCHLORIDE [Suspect]
     Active Substance: CINACALCET HYDROCHLORIDE
     Dosage: 50 MILLIGRAM, QD, RESTARTED AFTER SIX MONTH FOLLOW UP
     Route: 065
  3. ALCOHOL [Concomitant]
     Active Substance: ALCOHOL
     Indication: Hyperparathyroidism
  4. ALCOHOL [Concomitant]
     Active Substance: ALCOHOL

REACTIONS (2)
  - Death [Fatal]
  - Blood parathyroid hormone increased [Unknown]
